FAERS Safety Report 10151449 (Version 5)
Quarter: 2015Q1

REPORT INFORMATION
  Report Type: Spontaneous
  Country: JP (occurrence: JP)
  Receive Date: 20140504
  Receipt Date: 20150113
  Transmission Date: 20150720
  Serious: Yes (Disabling, Other)
  Sender: FDA-Public Use
  Company Number: JP-BRISTOL-MYERS SQUIBB COMPANY-20684908

PATIENT
  Age: 59 Year
  Sex: Female

DRUGS (6)
  1. ABILIFY [Suspect]
     Active Substance: ARIPIPRAZOLE
     Indication: DEMENTIA WITH LEWY BODIES
     Dosage: 3 MG, QD
     Route: 048
     Dates: start: 20140408, end: 20140413
  2. RISPERIDONE. [Concomitant]
     Active Substance: RISPERIDONE
     Route: 065
  3. HYDROCORTONE PHOSPHATE [Concomitant]
     Route: 065
  4. THYRADIN S [Concomitant]
     Active Substance: LEVOTHYROXINE SODIUM
     Route: 065
  5. ABILIFY [Suspect]
     Active Substance: ARIPIPRAZOLE
     Indication: OFF LABEL USE
     Dosage: 6 MG, QD
     Route: 048
     Dates: start: 20140414, end: 20140415
  6. ABILIFY [Suspect]
     Active Substance: ARIPIPRAZOLE
     Dosage: 3 MG, QD
     Route: 048
     Dates: start: 20140416, end: 20140421

REACTIONS (9)
  - Inappropriate antidiuretic hormone secretion [Recovering/Resolving]
  - Adrenocortical insufficiency acute [Recovering/Resolving]
  - Nausea [Unknown]
  - Hypoxia [Recovering/Resolving]
  - Altered state of consciousness [Recovered/Resolved]
  - Pneumonia aspiration [Recovering/Resolving]
  - Off label use [Unknown]
  - Blood sodium decreased [Unknown]
  - Vomiting [Unknown]

NARRATIVE: CASE EVENT DATE: 20140415
